FAERS Safety Report 16388767 (Version 1)
Quarter: 2019Q2

REPORT INFORMATION
  Report Type: Spontaneous
  Country: FR (occurrence: FR)
  Receive Date: 20190604
  Receipt Date: 20190604
  Transmission Date: 20190711
  Serious: Yes (Hospitalization)
  Sender: FDA-Public Use
  Company Number: FR-PFIZER INC-2019235466

PATIENT
  Age: 89 Year
  Sex: Female
  Weight: 92 kg

DRUGS (14)
  1. DOLIPRANE [Concomitant]
     Active Substance: ACETAMINOPHEN
     Indication: PAIN
     Dosage: 3 G, 1X/DAY
     Route: 048
  2. RESIKALI [Concomitant]
     Active Substance: CALCIUM POLYSTYRENE SULFONATE
     Indication: HYPERKALAEMIA
     Dosage: 1 DF, 1X/DAY
     Route: 048
     Dates: start: 20190421, end: 20190421
  3. TRANSULOSE [Concomitant]
     Active Substance: LACTULOSE\MINERAL OIL\PARAFFIN
     Indication: CONSTIPATION
     Dosage: 3 G, 1X/DAY
     Route: 048
  4. SPIRIVA [Concomitant]
     Active Substance: TIOTROPIUM BROMIDE MONOHYDRATE
     Indication: CHRONIC OBSTRUCTIVE PULMONARY DISEASE
     Dosage: 5 UG, 1X/DAY
     Route: 045
  5. SERETIDE [Concomitant]
     Active Substance: FLUTICASONE PROPIONATE\SALMETEROL XINAFOATE
     Indication: CHRONIC OBSTRUCTIVE PULMONARY DISEASE
     Dosage: 2 DF, 1X/DAY
     Route: 045
  6. EFFEXOR LP [Suspect]
     Active Substance: VENLAFAXINE HYDROCHLORIDE
     Dosage: 75 MG, 1X/DAY
     Route: 048
  7. ESIDREX [Concomitant]
     Active Substance: HYDROCHLOROTHIAZIDE
     Indication: HYPERTENSION
     Dosage: 12.5 MG, 1X/DAY
     Route: 048
  8. NEFOPAM HCL [Concomitant]
     Active Substance: NEFOPAM
     Indication: PAIN
     Dosage: 40 MG, 1X/DAY
     Route: 048
  9. AMOXICILLIN. [Concomitant]
     Active Substance: AMOXICILLIN
     Indication: LUNG DISORDER
     Dosage: 3 G, 1X/DAY
     Route: 042
     Dates: start: 20190422, end: 20190423
  10. PANTOPRAZOLE [Concomitant]
     Active Substance: PANTOPRAZOLE
     Indication: PEPTIC ULCER
     Dosage: 20 MG, 1X/DAY
     Route: 048
  11. ARIXTRA [Interacting]
     Active Substance: FONDAPARINUX SODIUM
     Indication: THROMBOPHLEBITIS SUPERFICIAL
     Dosage: 7.5 MG, 1X/DAY
     Route: 058
     Dates: start: 20190411, end: 20190421
  12. CEFTRIAXONE. [Concomitant]
     Active Substance: CEFTRIAXONE
     Indication: LUNG DISORDER
     Dosage: 1 G, 1X/DAY
     Route: 041
     Dates: start: 20190424, end: 20190501
  13. LACRIFLUID [Concomitant]
     Active Substance: CARBOMER
     Indication: DRY EYE
     Dosage: 1 GTT, 1X/DAY
     Route: 047
  14. METRONIDAZOLE. [Concomitant]
     Active Substance: METRONIDAZOLE
     Indication: LUNG DISORDER
     Dosage: 1500 MG, 1X/DAY
     Route: 041
     Dates: start: 20190424, end: 20190501

REACTIONS (2)
  - Drug interaction [Unknown]
  - Retroperitoneal haematoma [Not Recovered/Not Resolved]

NARRATIVE: CASE EVENT DATE: 20190423
